FAERS Safety Report 15636270 (Version 3)
Quarter: 2019Q3

REPORT INFORMATION
  Report Type: Report from Study
  Country: None (occurrence: BR)
  Receive Date: 20181120
  Receipt Date: 20190905
  Transmission Date: 20191004
  Serious: Yes (Other)
  Sender: FDA-Public Use
  Company Number: BR-ABBVIE-18K-020-2556055-00

PATIENT
  Sex: Female

DRUGS (5)
  1. HUMIRA [Suspect]
     Active Substance: ADALIMUMAB
     Indication: RHEUMATOID ARTHRITIS
     Route: 058
     Dates: start: 2018, end: 2018
  2. PREDNISONE. [Concomitant]
     Active Substance: PREDNISONE
     Indication: PRODUCT USED FOR UNKNOWN INDICATION
  3. HUMIRA [Suspect]
     Active Substance: ADALIMUMAB
     Route: 058
     Dates: start: 2018, end: 201907
  4. PREDNISONE. [Concomitant]
     Active Substance: PREDNISONE
  5. ARAVA [Concomitant]
     Active Substance: LEFLUNOMIDE
     Indication: PRODUCT USED FOR UNKNOWN INDICATION

REACTIONS (14)
  - Dry skin [Unknown]
  - Sensitivity to weather change [Unknown]
  - Limb injury [Unknown]
  - Pruritus [Recovering/Resolving]
  - Dry mouth [Unknown]
  - Influenza [Unknown]
  - Epistaxis [Unknown]
  - Pain in extremity [Not Recovered/Not Resolved]
  - Dry eye [Unknown]
  - Mobility decreased [Unknown]
  - Arthritis [Unknown]
  - Rheumatoid arthritis [Recovering/Resolving]
  - Tongue dry [Unknown]
  - Musculoskeletal disorder [Unknown]

NARRATIVE: CASE EVENT DATE: 2018
